FAERS Safety Report 18318952 (Version 1)
Quarter: 2020Q3

REPORT INFORMATION
  Report Type: Spontaneous
  Country: CA (occurrence: CA)
  Receive Date: 20200928
  Receipt Date: 20200928
  Transmission Date: 20201103
  Serious: Yes (Death, Other)
  Sender: FDA-Public Use
  Company Number: CA-ACCORD-202961

PATIENT

DRUGS (8)
  1. LOVASTATIN. [Suspect]
     Active Substance: LOVASTATIN
     Indication: TYPE IIA HYPERLIPIDAEMIA
     Route: 065
  2. PROBUCOL [Suspect]
     Active Substance: PROBUCOL
     Indication: TYPE IIA HYPERLIPIDAEMIA
     Route: 065
  3. ROSUVASTATIN. [Suspect]
     Active Substance: ROSUVASTATIN
     Indication: TYPE IIA HYPERLIPIDAEMIA
     Route: 065
  4. REPATHA [Suspect]
     Active Substance: EVOLOCUMAB
     Indication: TYPE IIA HYPERLIPIDAEMIA
     Dosage: SOLUTION SUBCUTANEOUS
     Route: 065
  5. ATORVASTATIN/ATORVASTATIN CALCIUM [Suspect]
     Active Substance: ATORVASTATIN CALCIUM
     Indication: TYPE IIA HYPERLIPIDAEMIA
     Route: 065
  6. SIMVASTATIN. [Suspect]
     Active Substance: SIMVASTATIN
     Indication: TYPE IIA HYPERLIPIDAEMIA
     Route: 065
  7. EZETIMIBE. [Suspect]
     Active Substance: EZETIMIBE
     Indication: TYPE IIA HYPERLIPIDAEMIA
     Dosage: 1 EVERY 1 DAY
     Route: 065
  8. JUXTAPID [Suspect]
     Active Substance: LOMITAPIDE MESYLATE
     Indication: TYPE IIA HYPERLIPIDAEMIA
     Dosage: 1 EVERY 1 DAYS
     Route: 065

REACTIONS (2)
  - Disease progression [Fatal]
  - Type IIa hyperlipidaemia [Fatal]
